FAERS Safety Report 6397454-0 (Version None)
Quarter: 2009Q4

REPORT INFORMATION
  Report Type: 
  Country: None (occurrence: None)
  Receive Date: 20091012
  Receipt Date: 20091005
  Transmission Date: 20100525
  Serious: No
  Sender: FDA-Public Use
  Company Number: US-B.I. PHARMACEUTICALS,INC./RIDGEFIELD-2009-BP-11615BP

PATIENT
  Age: 77 Year
  Sex: Female

DRUGS (9)
  1. SPIRIVA [Suspect]
     Dates: end: 20090815
  2. BROVANA [Suspect]
     Indication: CHRONIC OBSTRUCTIVE PULMONARY DISEASE
     Route: 055
     Dates: start: 20090501, end: 20090815
  3. DUONEB [Concomitant]
  4. COMBIVENT [Concomitant]
  5. FLOVENT [Concomitant]
  6. CELEXA [Concomitant]
  7. NORVASC [Concomitant]
  8. ZOCOR [Concomitant]
  9. AMBIEN [Concomitant]

REACTIONS (2)
  - DYSPNOEA [None]
  - PRURITUS [None]
